FAERS Safety Report 25717098 (Version 1)
Quarter: 2025Q3

REPORT INFORMATION
  Report Type: Spontaneous
  Country: US (occurrence: US)
  Receive Date: 20250822
  Receipt Date: 20250822
  Transmission Date: 20251021
  Serious: No
  Sender: SANOFI AVENTIS
  Company Number: US-SA-2025SA250027

PATIENT
  Age: 28 Year
  Sex: Female

DRUGS (1)
  1. DUPIXENT [Suspect]
     Active Substance: DUPILUMAB
     Indication: Idiopathic urticaria
     Dosage: 300 MG, QOW
     Route: 058

REACTIONS (7)
  - Influenza [Recovered/Resolved]
  - Pain [Recovered/Resolved]
  - Oropharyngeal pain [Recovered/Resolved]
  - Urticaria [Unknown]
  - Rash [Unknown]
  - Injection site urticaria [Unknown]
  - Product use in unapproved indication [Unknown]
